FAERS Safety Report 8343464-3 (Version None)
Quarter: 2012Q2

REPORT INFORMATION
  Report Type: 
  Country: None (occurrence: None)
  Receive Date: 20120508
  Receipt Date: 20100505
  Transmission Date: 20120825
  Serious: No
  Sender: FDA-Public Use
  Company Number: US-TEVA-2010002662

PATIENT
  Sex: Male

DRUGS (2)
  1. TREANDA [Suspect]
     Indication: LYMPHOMA
     Route: 042
  2. RITUXAN [Concomitant]
     Indication: LYMPHOMA
     Route: 042

REACTIONS (3)
  - BLOOD BILIRUBIN INCREASED [None]
  - ASPARTATE AMINOTRANSFERASE INCREASED [None]
  - ALANINE AMINOTRANSFERASE INCREASED [None]
